FAERS Safety Report 24242503 (Version 2)
Quarter: 2024Q4

REPORT INFORMATION
  Report Type: Spontaneous
  Country: DE (occurrence: DE)
  Receive Date: 20240823
  Receipt Date: 20241204
  Transmission Date: 20250115
  Serious: Yes (Other)
  Sender: TORRENT PHARMA INC.
  Company Number: DE-TORRENT-00027192

PATIENT
  Age: 63 Year
  Sex: Female
  Weight: 90 kg

DRUGS (5)
  1. ROSUVASTATIN [Suspect]
     Active Substance: ROSUVASTATIN
     Indication: Blood cholesterol increased
     Dosage: LAST DAILY DOSAGE OF ROSUVASTATIN:10MG
     Route: 065
     Dates: start: 202405, end: 202407
  2. HYGROTON [Concomitant]
     Active Substance: CHLORTHALIDONE
     Indication: Hypertension
     Dosage: HALF A TABLET IN THE MORNINGS: TO REDUCE BLOOD PRESSURE
     Route: 065
  3. LEVOTHYROXINE [Concomitant]
     Active Substance: LEVOTHYROXINE
     Indication: Thyroid disorder
     Dosage: ONE IN THE MORNINGS
     Route: 065
  4. MAGNESIUM CARBONATE [Concomitant]
     Active Substance: MAGNESIUM CARBONATE
     Indication: Conduction disorder
     Route: 065
  5. METOPROLOL [Concomitant]
     Active Substance: METOPROLOL
     Indication: Prophylaxis
     Dosage: 23.75 MG: QUARTER OF A TABLET IN THE MORNINGS AND ON DEMAND AS RESCUE MEDICATION (ONE TABLET)
     Route: 065

REACTIONS (11)
  - Anxiety disorder [Not Recovered/Not Resolved]
  - Pruritus [Not Recovered/Not Resolved]
  - Memory impairment [Not Recovered/Not Resolved]
  - Vertigo [Not Recovered/Not Resolved]
  - Fatigue [Not Recovered/Not Resolved]
  - Depression [Not Recovered/Not Resolved]
  - Hyperhidrosis [Not Recovered/Not Resolved]
  - Arrhythmia [Not Recovered/Not Resolved]
  - Disturbance in attention [Not Recovered/Not Resolved]
  - Performance status decreased [Not Recovered/Not Resolved]
  - Paraesthesia [Not Recovered/Not Resolved]
